FAERS Safety Report 24528637 (Version 1)
Quarter: 2024Q4

REPORT INFORMATION
  Report Type: Spontaneous
  Country: CH (occurrence: CH)
  Receive Date: 20241021
  Receipt Date: 20241021
  Transmission Date: 20250115
  Serious: Yes (Hospitalization)
  Sender: BRACCO
  Company Number: CH-BRACCO-2024CH06432

PATIENT
  Age: 52 Year
  Sex: Male

DRUGS (3)
  1. CARDIOGEN-82 [Suspect]
     Active Substance: RUBIDIUM CHLORIDE RB-82
     Indication: Positron emission tomogram
     Dosage: 703 MBQ, SINGLE
     Route: 042
     Dates: start: 20241010, end: 20241010
  2. CARDIOGEN-82 [Suspect]
     Active Substance: RUBIDIUM CHLORIDE RB-82
     Indication: Positron emission tomogram
     Dosage: 703 MBQ, SINGLE
     Route: 042
     Dates: start: 20241010, end: 20241010
  3. REGADENOSON [Concomitant]
     Active Substance: REGADENOSON
     Indication: Cardiac stress test
     Dosage: UNK
     Dates: start: 20241010

REACTIONS (2)
  - Headache [Recovered/Resolved]
  - Vertigo [Recovered/Resolved]

NARRATIVE: CASE EVENT DATE: 20241010
